FAERS Safety Report 18992201 (Version 2)
Quarter: 2021Q1

REPORT INFORMATION
  Report Type: Report from Study
  Country: IL (occurrence: IL)
  Receive Date: 20210310
  Receipt Date: 20210323
  Transmission Date: 20210420
  Serious: Yes (Other)
  Sender: FDA-Public Use
  Company Number: IL-VERTEX PHARMACEUTICALS-2021-003796

PATIENT
  Age: 18 Year
  Sex: Male
  Weight: 54 kg

DRUGS (7)
  1. LANTON [Concomitant]
     Indication: PANCREATIC FAILURE
     Dosage: UNK, BID
     Route: 048
  2. TRIKAFTA [Suspect]
     Active Substance: ELEXACAFTOR\IVACAFTOR\TEZACAFTOR
     Dosage: 100MG ELEXA/ 50MG TEZA/ 75MG IVA AND 150MG IVA AT UNK FREQ
     Route: 048
     Dates: start: 20210305
  3. TRIKAFTA [Suspect]
     Active Substance: ELEXACAFTOR\IVACAFTOR\TEZACAFTOR
     Indication: CYSTIC FIBROSIS
     Dosage: 100MG ELEXA/ 50MG TEZA/ 75MG IVA AND 150MG IVA AT UNK FREQ
     Route: 048
     Dates: start: 20191205, end: 20210209
  4. FEXOFENADINE [Concomitant]
     Active Substance: FEXOFENADINE HYDROCHLORIDE
     Indication: BRONCHOPULMONARY ASPERGILLOSIS ALLERGIC
     Dosage: UNK, BID
     Route: 048
     Dates: start: 201912
  5. CREON [Concomitant]
     Active Substance: PANCRELIPASE AMYLASE\PANCRELIPASE LIPASE\PANCRELIPASE PROTEASE
     Indication: PANCREATIC FAILURE
     Dosage: UNK, PRN
     Route: 048
     Dates: start: 200909
  6. CIPRO [Concomitant]
     Active Substance: CIPROFLOXACIN HYDROCHLORIDE
     Indication: CYSTIC FIBROSIS
     Dosage: UNK, BID
     Route: 048
     Dates: start: 20210218
  7. HYPERTONIC SALINE SOLUTION [Concomitant]
     Active Substance: SODIUM CHLORIDE
     Indication: CYSTIC FIBROSIS
     Dosage: UNK, BID

REACTIONS (2)
  - International normalised ratio increased [Recovered/Resolved]
  - Liver function test increased [Recovered/Resolved]

NARRATIVE: CASE EVENT DATE: 20210204
